FAERS Safety Report 24132868 (Version 5)
Quarter: 2025Q1

REPORT INFORMATION
  Report Type: Spontaneous
  Country: JP (occurrence: JP)
  Receive Date: 20240724
  Receipt Date: 20250328
  Transmission Date: 20250409
  Serious: Yes (Hospitalization, Other)
  Sender: BRISTOL-MYERS SQUIBB COMPANY
  Company Number: JP-BRISTOL-MYERS SQUIBB COMPANY-2024-117012

PATIENT
  Age: 66 Year
  Sex: Male
  Weight: 56.4 kg

DRUGS (3)
  1. VIDAZA [Suspect]
     Active Substance: AZACITIDINE
     Indication: Myelodysplastic syndrome
     Dosage: 1 7 DAYS
     Route: 058
     Dates: start: 20240528, end: 20240603
  2. RAMOSETRON HYDROCHLORIDE [Concomitant]
     Active Substance: RAMOSETRON HYDROCHLORIDE
     Indication: Product used for unknown indication
  3. MAGNESIUM OXIDE [Concomitant]
     Active Substance: MAGNESIUM OXIDE
     Indication: Product used for unknown indication

REACTIONS (14)
  - Multiple organ dysfunction syndrome [Not Recovered/Not Resolved]
  - Injection site erythema [Unknown]
  - Injection site vesicles [Unknown]
  - Injection site pain [Unknown]
  - Inflammation [Unknown]
  - Cytopenia [Unknown]
  - Hepatic function abnormal [Unknown]
  - Renal impairment [Unknown]
  - Cardiac failure congestive [Recovered/Resolved]
  - Rash [Not Recovered/Not Resolved]
  - Haemophagocytic lymphohistiocytosis [Unknown]
  - Dermatitis bullous [Not Recovered/Not Resolved]
  - Mouth haemorrhage [Recovering/Resolving]
  - Cytokine release syndrome [Unknown]

NARRATIVE: CASE EVENT DATE: 20240101
